FAERS Safety Report 20472711 (Version 2)
Quarter: 2022Q1

REPORT INFORMATION
  Report Type: Report from Study
  Country: US (occurrence: US)
  Receive Date: 20220215
  Receipt Date: 20220320
  Transmission Date: 20220423
  Serious: Yes (Hospitalization, Other)
  Sender: FDA-Public Use
  Company Number: US-AMGEN-USASL2022012040

PATIENT
  Age: 72 Year
  Sex: Male

DRUGS (1)
  1. ENBREL [Suspect]
     Active Substance: ETANERCEPT
     Indication: Rheumatoid arthritis
     Dosage: 50 MILLIGRAM, QWK
     Route: 065
     Dates: start: 20211214

REACTIONS (11)
  - Lung neoplasm malignant [Unknown]
  - Dizziness [Not Recovered/Not Resolved]
  - Asthenia [Not Recovered/Not Resolved]
  - Red blood cell count decreased [Not Recovered/Not Resolved]
  - Lymphoma [Unknown]
  - Hyperhidrosis [Unknown]
  - Lip swelling [Unknown]
  - Injection site swelling [Unknown]
  - Injection site erythema [Not Recovered/Not Resolved]
  - Blood pressure abnormal [Unknown]
  - Presyncope [Unknown]

NARRATIVE: CASE EVENT DATE: 20220118
